FAERS Safety Report 18866883 (Version 1)
Quarter: 2021Q1

REPORT INFORMATION
  Report Type: Spontaneous
  Country: US (occurrence: US)
  Receive Date: 20210208
  Receipt Date: 20210208
  Transmission Date: 20210420
  Serious: No
  Sender: FDA-Public Use
  Company Number: US-TARO-2020TAR01721

PATIENT

DRUGS (2)
  1. TRETINOIN. [Suspect]
     Active Substance: TRETINOIN
     Indication: ACNE CYSTIC
     Dosage: A LITTLE DOSE, ONCE AT NIGHT ON FACE
     Route: 061
     Dates: start: 202010, end: 202011
  2. TRETINOIN. [Suspect]
     Active Substance: TRETINOIN
     Dosage: UNK
     Route: 061
     Dates: start: 202009

REACTIONS (2)
  - Rash [Recovering/Resolving]
  - Dry skin [Recovering/Resolving]

NARRATIVE: CASE EVENT DATE: 202009
